FAERS Safety Report 23539727 (Version 1)
Quarter: 2024Q1

REPORT INFORMATION
  Report Type: Spontaneous
  Country: CA (occurrence: CA)
  Receive Date: 20240219
  Receipt Date: 20240219
  Transmission Date: 20240410
  Serious: Yes (Hospitalization, Other)
  Sender: FDA-Public Use
  Company Number: CA-FreseniusKabi-FK202402567

PATIENT
  Age: 71 Year
  Sex: Male

DRUGS (3)
  1. PIPERACILLIN SODIUM\TAZOBACTAM SODIUM [Suspect]
     Active Substance: PIPERACILLIN SODIUM\TAZOBACTAM SODIUM
     Indication: Pseudomonas test positive
     Route: 065
  2. CILASTATIN SODIUM\IMIPENEM [Suspect]
     Active Substance: CILASTATIN SODIUM\IMIPENEM
     Indication: Pseudomonas test positive
     Dosage: ROA: UNKNOWN
  3. CIPROFLOXACIN [Suspect]
     Active Substance: CIPROFLOXACIN
     Indication: Pseudomonas test positive
     Dosage: ROA: UNKNOWN?DOSAGE FORM: NOT SPECIFIED

REACTIONS (5)
  - Antimicrobial susceptibility test resistant [Unknown]
  - Increased bronchial secretion [Unknown]
  - Oxygen consumption increased [Unknown]
  - Sputum purulent [Unknown]
  - White blood cell count increased [Unknown]
